FAERS Safety Report 17100046 (Version 1)
Quarter: 2019Q4

REPORT INFORMATION
  Report Type: Spontaneous
  Country: BR (occurrence: BR)
  Receive Date: 20191202
  Receipt Date: 20191202
  Transmission Date: 20200122
  Serious: Yes (Death, Hospitalization, Other)
  Sender: FDA-Public Use
  Company Number: BR-PFIZER INC-2019519797

PATIENT
  Age: 54 Year
  Sex: Female
  Weight: 55 kg

DRUGS (4)
  1. ATLANSIL [AMIODARONE HYDROCHLORIDE] [Suspect]
     Active Substance: AMIODARONE HYDROCHLORIDE
     Indication: SHOCK
  2. AMIODARONE HCL [Suspect]
     Active Substance: AMIODARONE HYDROCHLORIDE
     Indication: SHOCK
  3. ATLANSIL [AMIODARONE HYDROCHLORIDE] [Suspect]
     Active Substance: AMIODARONE HYDROCHLORIDE
     Indication: ARRHYTHMIA
     Dosage: 900 MG, QD
     Route: 042
  4. AMIODARONE HCL [Suspect]
     Active Substance: AMIODARONE HYDROCHLORIDE
     Indication: ARRHYTHMIA
     Dosage: UNK
     Route: 048

REACTIONS (5)
  - Autonomic nervous system imbalance [Fatal]
  - Shock [Fatal]
  - Sepsis [Fatal]
  - Thyroiditis [Recovering/Resolving]
  - Pyelonephritis [Unknown]
